FAERS Safety Report 6172069-8 (Version None)
Quarter: 2009Q2

REPORT INFORMATION
  Report Type: 
  Country: None (occurrence: None)
  Receive Date: 20090428
  Receipt Date: 20090428
  Transmission Date: 20091009
  Serious: Yes (Hospitalization, Disabling)
  Sender: FDA-Public Use
  Company Number: None

PATIENT
  Age: 49 Year
  Sex: Female
  Weight: 70.3075 kg

DRUGS (2)
  1. PAXIL [Suspect]
     Indication: ANXIETY
     Dosage: 3 TIMES A DAY OVER A YEAR PO
     Route: 048
     Dates: start: 20080108, end: 20090314
  2. PAXIL [Suspect]
     Indication: DEPRESSION
     Dosage: 3 TIMES A DAY OVER A YEAR PO
     Route: 048
     Dates: start: 20080108, end: 20090314

REACTIONS (42)
  - ABDOMINAL DISTENSION [None]
  - AFFECT LABILITY [None]
  - AGGRESSION [None]
  - ALOPECIA [None]
  - ASTHENIA [None]
  - BURNING SENSATION [None]
  - COUGH [None]
  - DISCOMFORT [None]
  - DISTURBANCE IN ATTENTION [None]
  - DRY MOUTH [None]
  - DRY SKIN [None]
  - DYSPHONIA [None]
  - EYE DISORDER [None]
  - FATIGUE [None]
  - FEELING COLD [None]
  - FLATULENCE [None]
  - HALLUCINATION [None]
  - HEADACHE [None]
  - HOT FLUSH [None]
  - HUNGER [None]
  - HYPERHIDROSIS [None]
  - HYPOAESTHESIA [None]
  - INSOMNIA [None]
  - LETHARGY [None]
  - MYALGIA [None]
  - NASAL CONGESTION [None]
  - NAUSEA [None]
  - NERVOUSNESS [None]
  - OBSESSIVE-COMPULSIVE DISORDER [None]
  - PAIN [None]
  - PERIPHERAL COLDNESS [None]
  - PRURITUS [None]
  - PYREXIA [None]
  - SENSATION OF HEAVINESS [None]
  - SPEECH DISORDER [None]
  - SUICIDAL IDEATION [None]
  - SYNCOPE [None]
  - TREMOR [None]
  - VERTIGO [None]
  - VOMITING [None]
  - WEIGHT DECREASED [None]
  - WITHDRAWAL SYNDROME [None]
